FAERS Safety Report 4730580-8 (Version None)
Quarter: 2005Q3

REPORT INFORMATION
  Report Type: 
  Country: None (occurrence: None)
  Receive Date: 20050725
  Receipt Date: 20050328
  Transmission Date: 20060218
  Serious: No
  Sender: FDA-Public Use
  Company Number: USA050393217

PATIENT
  Age: 66 Year
  Sex: Female
  Weight: 76 kg

DRUGS (2)
  1. STRATTERA [Suspect]
     Indication: ATTENTION DEFICIT/HYPERACTIVITY DISORDER
     Dosage: 25 MG/3 DAY
     Dates: start: 20050305
  2. PREMPRO [Concomitant]

REACTIONS (2)
  - ABDOMINAL PAIN UPPER [None]
  - RECTAL HAEMORRHAGE [None]
